FAERS Safety Report 26208263 (Version 1)
Quarter: 2025Q4

REPORT INFORMATION
  Report Type: Spontaneous
  Country: US (occurrence: US)
  Receive Date: 20251229
  Receipt Date: 20251229
  Transmission Date: 20260118
  Serious: Yes (Other)
  Sender: BAYER HEALTHCARE LLC
  Company Number: US-BAYER-2025A169110

PATIENT

DRUGS (2)
  1. CORICIDIN HBP MAXIMUM STRENGTH COLD FLU AND CHEST CONGESTION [Suspect]
     Active Substance: ACETAMINOPHEN\GUAIFENESIN
     Indication: Hypersensitivity
     Dosage: UNK
     Route: 048
     Dates: start: 202511
  2. CORICIDIN HBP MAXIMUM STRENGTH COLD FLU AND CHEST CONGESTION [Suspect]
     Active Substance: ACETAMINOPHEN\GUAIFENESIN
     Indication: Nasopharyngitis

REACTIONS (1)
  - Foreign body in throat [Recovered/Resolved]

NARRATIVE: CASE EVENT DATE: 20250101
